FAERS Safety Report 12595588 (Version 1)
Quarter: 2016Q3

REPORT INFORMATION
  Report Type: Report from Study
  Country: NL (occurrence: NL)
  Receive Date: 20160726
  Receipt Date: 20160726
  Transmission Date: 20161109
  Serious: Yes (Other)
  Sender: FDA-Public Use
  Company Number: NL-BIOGEN-2016BI00172354

PATIENT
  Age: 32 Year
  Sex: Female

DRUGS (1)
  1. PLEGRIDY [Suspect]
     Active Substance: PEGINTERFERON BETA-1A
     Indication: MULTIPLE SCLEROSIS
     Route: 058
     Dates: start: 20150802, end: 20151130

REACTIONS (3)
  - Maternal exposure during pregnancy [Recovered/Resolved]
  - Meconium in amniotic fluid [Recovered/Resolved]
  - Prolonged labour [Recovered/Resolved]
